FAERS Safety Report 5757741-3 (Version None)
Quarter: 2008Q2

REPORT INFORMATION
  Report Type: 
  Country: None (occurrence: None)
  Receive Date: 20080529
  Receipt Date: 20080527
  Transmission Date: 20081010
  Serious: Yes (Death, Hospitalization, Other)
  Sender: FDA-Public Use
  Company Number: 2007SP017599

PATIENT
  Age: 52 Year
  Sex: Female
  Weight: 43 kg

DRUGS (20)
  1. TEMODAL [Suspect]
     Indication: ASTROCYTOMA
     Dosage: PO; 200  MG/M2; QD; PO
     Route: 048
     Dates: start: 20060428, end: 20060924
  2. TEMODAL [Suspect]
     Indication: NEOPLASM RECURRENCE
     Dosage: PO; 200  MG/M2; QD; PO
     Route: 048
     Dates: start: 20060428, end: 20060924
  3. TEMODAL [Suspect]
     Indication: ASTROCYTOMA
     Dosage: PO; 200  MG/M2; QD; PO
     Route: 048
     Dates: start: 20061206, end: 20061210
  4. TEMODAL [Suspect]
     Indication: NEOPLASM RECURRENCE
     Dosage: PO; 200  MG/M2; QD; PO
     Route: 048
     Dates: start: 20061206, end: 20061210
  5. TEMODAL [Suspect]
     Indication: ASTROCYTOMA
     Dosage: PO; 200  MG/M2; QD; PO
     Route: 048
     Dates: start: 20070216, end: 20070220
  6. TEMODAL [Suspect]
     Indication: NEOPLASM RECURRENCE
     Dosage: PO; 200  MG/M2; QD; PO
     Route: 048
     Dates: start: 20070216, end: 20070220
  7. TEMODAL [Suspect]
     Indication: ASTROCYTOMA
     Dosage: PO; 200  MG/M2; QD; PO
     Route: 048
     Dates: start: 20070425, end: 20070429
  8. TEMODAL [Suspect]
     Indication: NEOPLASM RECURRENCE
     Dosage: PO; 200  MG/M2; QD; PO
     Route: 048
     Dates: start: 20070425, end: 20070429
  9. TEMODAL [Suspect]
     Indication: ASTROCYTOMA
     Dosage: PO; 200  MG/M2; QD; PO
     Route: 048
     Dates: start: 20070620, end: 20070624
  10. TEMODAL [Suspect]
     Indication: NEOPLASM RECURRENCE
     Dosage: PO; 200  MG/M2; QD; PO
     Route: 048
     Dates: start: 20070620, end: 20070624
  11. TEMODAL [Suspect]
     Indication: ASTROCYTOMA
     Dosage: PO; 200  MG/M2; QD; PO
     Route: 048
     Dates: start: 20070903, end: 20070907
  12. TEMODAL [Suspect]
     Indication: NEOPLASM RECURRENCE
     Dosage: PO; 200  MG/M2; QD; PO
     Route: 048
     Dates: start: 20070903, end: 20070907
  13. DEPAKENE [Suspect]
     Indication: DRUG USE FOR UNKNOWN INDICATION
     Dosage: PO
     Route: 048
     Dates: end: 20071017
  14. PROCARBAZINE HYDROCHLORIDE (PROCARBAZINE HYDROCHLORIDE) [Suspect]
     Indication: DRUG USE FOR UNKNOWN INDICATION
     Dosage: PO
     Route: 048
     Dates: start: 20070829, end: 20070907
  15. SELBEX [Concomitant]
  16. MAGNESIUM OXIDE [Concomitant]
  17. NAVOBAN [Concomitant]
  18. EXCEGRAN [Concomitant]
  19. FAMOTIDINE [Concomitant]
  20. PRIMPERAN TAB [Concomitant]

REACTIONS (8)
  - CEREBELLAR ATAXIA [None]
  - INSOMNIA [None]
  - NEOPLASM PROGRESSION [None]
  - NEOPLASM RECURRENCE [None]
  - NEUTROPHIL COUNT DECREASED [None]
  - PLATELET COUNT DECREASED [None]
  - RESTLESSNESS [None]
  - WHITE BLOOD CELL COUNT DECREASED [None]
